FAERS Safety Report 12061965 (Version 2)
Quarter: 2016Q1

REPORT INFORMATION
  Report Type: Spontaneous
  Country: AU (occurrence: AU)
  Receive Date: 20160210
  Receipt Date: 20160314
  Transmission Date: 20160526
  Serious: Yes (Life-Threatening, Hospitalization, Other)
  Sender: FDA-Public Use
  Company Number: AU-ALEXION PHARMACEUTICALS INC.-A201600658

PATIENT
  Age: 36 Year
  Sex: Female
  Weight: 103 kg

DRUGS (6)
  1. WARFARIN [Concomitant]
     Active Substance: WARFARIN
     Indication: PAROXYSMAL NOCTURNAL HAEMOGLOBINURIA
     Dosage: 7 MG, QD
     Route: 048
     Dates: start: 2011
  2. WARFARIN [Concomitant]
     Active Substance: WARFARIN
     Indication: PORTAL SHUNT
  3. FOLATE [Concomitant]
     Active Substance: FOLATE SODIUM
     Indication: PAROXYSMAL NOCTURNAL HAEMOGLOBINURIA
     Dosage: 5 MG, QD
     Route: 048
     Dates: start: 2011
  4. SOLIRIS [Suspect]
     Active Substance: ECULIZUMAB
     Dosage: 900 MG, Q2W
     Route: 042
     Dates: start: 20111028
  5. SOLIRIS [Suspect]
     Active Substance: ECULIZUMAB
     Indication: PAROXYSMAL NOCTURNAL HAEMOGLOBINURIA
     Dosage: 600 MG, QW
     Route: 042
     Dates: start: 20110930, end: 20111021
  6. ROXITHROMYCIN [Concomitant]
     Active Substance: ROXITHROMYCIN
     Indication: PROPHYLAXIS
     Dosage: 150 MG, BID
     Route: 048
     Dates: start: 201510

REACTIONS (1)
  - Vascular stent thrombosis [Recovered/Resolved]

NARRATIVE: CASE EVENT DATE: 20160106
